FAERS Safety Report 5071707-0 (Version None)
Quarter: 2006Q3

REPORT INFORMATION
  Report Type: 
  Country: None (occurrence: None)
  Receive Date: 20060804
  Receipt Date: 20060724
  Transmission Date: 20061208
  Serious: Yes (Hospitalization)
  Sender: FDA-Public Use
  Company Number: PHRM2006FR02164

PATIENT
  Age: 77 Year
  Sex: Male
  Weight: 79 kg

DRUGS (2)
  1. ZOMETA [Suspect]
     Indication: LYMPHOMA
     Dosage: 4 MG, QMO
     Route: 042
     Dates: start: 20030301, end: 20050504
  2. MABTHERA [Concomitant]
     Indication: LYMPHOMA
     Route: 042
     Dates: start: 20030301, end: 20050311

REACTIONS (1)
  - OSTEONECROSIS [None]
